FAERS Safety Report 15944080 (Version 2)
Quarter: 2019Q1

REPORT INFORMATION
  Report Type: Spontaneous
  Country: US (occurrence: US)
  Receive Date: 20190211
  Receipt Date: 20190321
  Transmission Date: 20190417
  Serious: No
  Sender: FDA-Public Use
  Company Number: US-CELGENEUS-USA-20190201138

PATIENT
  Age: 35 Year
  Sex: Female

DRUGS (6)
  1. CALCIPOTRIENE. [Concomitant]
     Active Substance: CALCIPOTRIENE
     Indication: PSORIASIS
     Route: 061
     Dates: start: 20160713, end: 20161214
  2. CLOBETASOL [Concomitant]
     Active Substance: CLOBETASOL
     Indication: PSORIASIS
     Dosage: BID X 2 WEEKS, QD X 1 WEEK THEN 2 X 1 WEEK MAINTAINANCE
     Route: 061
     Dates: start: 20160713, end: 20161214
  3. CLOBETASOL [Concomitant]
     Active Substance: CLOBETASOL
     Dosage: FOR 5 TO 7 DAYS
     Route: 061
     Dates: start: 20160323, end: 20161214
  4. OTEZLA [Suspect]
     Active Substance: APREMILAST
     Indication: PSORIASIS
     Dosage: 30 MILLIGRAM
     Route: 048
     Dates: start: 20160919
  5. OTEZLA [Suspect]
     Active Substance: APREMILAST
     Dosage: 30 MILLIGRAM
     Route: 048
     Dates: start: 20161214
  6. OTEZLA [Suspect]
     Active Substance: APREMILAST
     Dosage: 30 MILLIGRAM
     Route: 048
     Dates: start: 20170818

REACTIONS (1)
  - Gastroenteritis viral [Recovering/Resolving]

NARRATIVE: CASE EVENT DATE: 20161214
